FAERS Safety Report 8354490-2 (Version None)
Quarter: 2012Q2

REPORT INFORMATION
  Report Type: 
  Country: None (occurrence: None)
  Receive Date: 20120511
  Receipt Date: 20110208
  Transmission Date: 20120825
  Serious: No
  Sender: FDA-Public Use
  Company Number: US-TEVA-2011000635

PATIENT
  Sex: Female
  Weight: 81.72 kg

DRUGS (3)
  1. NUVIGIL [Suspect]
     Indication: NARCOLEPSY
     Route: 048
     Dates: start: 20110122
  2. VYTORIN [Concomitant]
     Dates: start: 20090101
  3. DIOVAN [Concomitant]
     Dates: start: 20090101

REACTIONS (3)
  - DRUG ADMINISTRATION ERROR [None]
  - HEADACHE [None]
  - FEELING ABNORMAL [None]
